FAERS Safety Report 21106070 (Version 1)
Quarter: 2022Q3

REPORT INFORMATION
  Report Type: Spontaneous
  Country: CN (occurrence: CN)
  Receive Date: 20220720
  Receipt Date: 20220720
  Transmission Date: 20221027
  Serious: Yes (Hospitalization)
  Sender: FDA-Public Use
  Company Number: CN-ORGANON-O2207CHN001523

PATIENT
  Sex: Female
  Weight: 58.6 kg

DRUGS (12)
  1. FOSAMAX [Suspect]
     Active Substance: ALENDRONATE SODIUM
     Indication: Osteoporosis
     Dosage: 1 TABLET, QW
     Route: 048
     Dates: start: 20220127, end: 20220217
  2. FOSAMAX [Suspect]
     Active Substance: ALENDRONATE SODIUM
     Indication: Menopause
  3. IRBESARTAN [Concomitant]
     Active Substance: IRBESARTAN
     Indication: Hypertension
     Dosage: 150 MILLIGRAM, QD
     Route: 048
     Dates: start: 20210227
  4. METFORMIN HYDROCHLORIDE [Concomitant]
     Active Substance: METFORMIN HYDROCHLORIDE
     Dosage: 1 GRAM, QD
     Route: 048
     Dates: start: 20211129
  5. GLICLAZIDE [Concomitant]
     Active Substance: GLICLAZIDE
     Indication: Type 2 diabetes mellitus
     Dosage: 90 MILLIGRAM, QD
     Route: 048
     Dates: start: 20211129
  6. INSULIN NOS [Concomitant]
     Active Substance: INSULIN NOS
     Indication: Type 2 diabetes mellitus
     Dosage: 4IU, IM
     Route: 058
     Dates: start: 20220224, end: 20220224
  7. ATORVASTATIN CALCIUM [Concomitant]
     Active Substance: ATORVASTATIN CALCIUM
     Indication: Diabetic vascular disorder
     Dosage: 20 MILLIGRAM, QD
     Route: 048
     Dates: start: 20220222, end: 20220227
  8. ASPIRIN [Concomitant]
     Active Substance: ASPIRIN
     Indication: Diabetic vascular disorder
     Dosage: 100 MILLIGRAM, QD, ENTERIC-COATED TABLETS
     Route: 048
     Dates: start: 20220222, end: 20220227
  9. CALCIUM CARBONATE AND VITAMIN D3 TABLETS (II) [Concomitant]
     Indication: Osteoporosis
     Dosage: 1 TABLET, QD
     Route: 048
     Dates: start: 20220222, end: 20220227
  10. VITAMIN D2 [Concomitant]
     Active Substance: ERGOCALCIFEROL
     Indication: Osteoporosis
     Dosage: 0.125 MILLIGRAM, QD
     Route: 048
     Dates: start: 20220222, end: 20220227
  11. KALLIDINOGENASE [Concomitant]
     Active Substance: KALLIDINOGENASE
     Indication: Diabetic vascular disorder
     Dosage: 240 INTERNATIONAL UNIT, TID
     Route: 048
     Dates: start: 20211029
  12. CALCIUM SUPPLEMENT WITH VITAMIN D CHEWABLE TABLETS CHILDREN^S FORMULA [Concomitant]
     Indication: Osteoporosis
     Dosage: 2 TABLETS, QD
     Route: 048
     Dates: start: 20220127

REACTIONS (2)
  - Seizure [Recovered/Resolved]
  - Urinary tract infection [Unknown]

NARRATIVE: CASE EVENT DATE: 20220219
